FAERS Safety Report 26125272 (Version 1)
Quarter: 2025Q4

REPORT INFORMATION
  Report Type: Spontaneous
  Country: US (occurrence: None)
  Receive Date: 20251204
  Receipt Date: 20251204
  Transmission Date: 20260117
  Serious: Yes (Other)
  Sender: FDA-CTU
  Company Number: None

PATIENT
  Age: 57 Year
  Sex: Female

DRUGS (2)
  1. DATROWAY [Suspect]
     Active Substance: DATOPOTAMAB DERUXTECAN-DLNK
     Dosage: FREQUENCY : DAILY;?40M G (80MG PREVIOUSLY FOR TAGRISSO TAB) AND UNKNOWN (FOR DATROWAY I?
     Route: 048
  2. TAGRISSO [Suspect]
     Active Substance: OSIMERTINIB
     Dosage: FREQUENCY : DAILY;?

REACTIONS (2)
  - Off label use [None]
  - Therapy change [None]
